FAERS Safety Report 7046236-5 (Version None)
Quarter: 2010Q4

REPORT INFORMATION
  Report Type: 
  Country: None (occurrence: None)
  Receive Date: 20101014
  Receipt Date: 20101007
  Transmission Date: 20110411
  Serious: Yes (Hospitalization, Congenital Anomaly)
  Sender: FDA-Public Use
  Company Number: A0878190A

PATIENT
  Sex: Female
  Weight: 3.7 kg

DRUGS (3)
  1. PAXIL [Suspect]
     Indication: PRODUCT USED FOR UNKNOWN INDICATION
  2. IRON [Concomitant]
  3. PRENATAL VITAMINS [Concomitant]

REACTIONS (5)
  - CONGENITAL CORONARY ARTERY MALFORMATION [None]
  - DRUG EXPOSURE DURING PREGNANCY [None]
  - FALLOT'S TETRALOGY [None]
  - LEFT VENTRICLE OUTFLOW TRACT OBSTRUCTION [None]
  - PULMONARY VALVE INCOMPETENCE [None]
